FAERS Safety Report 4984620-1 (Version None)
Quarter: 2006Q2

REPORT INFORMATION
  Report Type: 
  Country: None (occurrence: None)
  Receive Date: 20060427
  Receipt Date: 20050228
  Transmission Date: 20061013
  Serious: Yes (Hospitalization, Other)
  Sender: FDA-Public Use
  Company Number: US-MERCK-0503USA00266

PATIENT
  Age: 83 Year
  Sex: Male
  Weight: 116 kg

DRUGS (17)
  1. VIOXX [Suspect]
     Indication: ARTHRITIS
     Route: 048
     Dates: start: 19991001, end: 20040809
  2. DILTIAZEM MALATE [Concomitant]
     Route: 065
  3. TEMAZEPAM [Concomitant]
     Route: 065
  4. OMEPRAZOLE [Concomitant]
     Route: 065
  5. FUROSEMIDE [Concomitant]
     Route: 065
  6. COZAAR [Concomitant]
     Route: 065
  7. [THERAPY UNSPECIFIED] [Concomitant]
     Route: 065
  8. TYLENOL (CAPLET) [Concomitant]
     Route: 065
  9. ALLOPURINOL [Concomitant]
     Route: 065
  10. PROTONIX [Concomitant]
     Route: 065
  11. DIGOXIN [Concomitant]
     Route: 065
  12. CARDIZEM [Concomitant]
     Route: 065
  13. LIPITOR [Concomitant]
     Route: 065
  14. ATENOLOL [Concomitant]
     Route: 065
  15. COUMADIN [Concomitant]
     Route: 065
  16. KLOR-CON [Concomitant]
     Route: 065
  17. MIRTAZAPINE [Concomitant]
     Route: 065

REACTIONS (69)
  - ACCIDENTAL OVERDOSE [None]
  - ANAEMIA [None]
  - ANAEMIA MACROCYTIC [None]
  - ANGINA PECTORIS [None]
  - AORTIC CALCIFICATION [None]
  - AORTIC STENOSIS [None]
  - AORTIC VALVE INCOMPETENCE [None]
  - AORTIC VALVE STENOSIS [None]
  - ATELECTASIS [None]
  - ATRIAL FIBRILLATION [None]
  - BLADDER CANCER [None]
  - BLOOD POTASSIUM INCREASED [None]
  - BRONCHITIS ACUTE [None]
  - BUNDLE BRANCH BLOCK RIGHT [None]
  - CARDIAC FAILURE CONGESTIVE [None]
  - CARDIOMEGALY [None]
  - CARDIOMYOPATHY [None]
  - CARDIOVASCULAR DISORDER [None]
  - CAROTID ARTERY DISEASE [None]
  - CEREBROVASCULAR ACCIDENT [None]
  - CHEST DISCOMFORT [None]
  - CHEST PAIN [None]
  - CONGESTIVE CARDIOMYOPATHY [None]
  - CORONARY ARTERY DISEASE [None]
  - CORONARY ARTERY STENOSIS [None]
  - DILATATION ATRIAL [None]
  - DISEASE RECURRENCE [None]
  - DIZZINESS [None]
  - DYSLIPIDAEMIA [None]
  - DYSPNOEA [None]
  - DYSPNOEA EXERTIONAL [None]
  - DYSURIA [None]
  - EJECTION FRACTION DECREASED [None]
  - ELECTROCARDIOGRAM T WAVE INVERSION [None]
  - ENDOCARDITIS BACTERIAL [None]
  - HAEMATURIA [None]
  - HAEMORRHOIDS [None]
  - HYPERCHOLESTEROLAEMIA [None]
  - HYPERCOAGULATION [None]
  - HYPERTENSION [None]
  - HYPOAESTHESIA [None]
  - HYPONATRAEMIA [None]
  - INFLUENZA [None]
  - INJURY [None]
  - LEUKOPENIA [None]
  - LOBAR PNEUMONIA [None]
  - MEAN CELL HAEMOGLOBIN INCREASED [None]
  - MEAN CELL VOLUME INCREASED [None]
  - MITRAL VALVE CALCIFICATION [None]
  - MITRAL VALVE INCOMPETENCE [None]
  - MYOCARDIAL INFARCTION [None]
  - NAUSEA [None]
  - PARAESTHESIA [None]
  - PERIPHERAL VASCULAR DISORDER [None]
  - PHARYNGITIS [None]
  - PLEURAL EFFUSION [None]
  - PNEUMONIA [None]
  - POSTOPERATIVE THORACIC PROCEDURE COMPLICATION [None]
  - PULMONARY CONGESTION [None]
  - PULMONARY HYPERTENSION [None]
  - PYREXIA [None]
  - QRS AXIS ABNORMAL [None]
  - RENAL INJURY [None]
  - ROTATOR CUFF SYNDROME [None]
  - SINUS BRADYCARDIA [None]
  - TRANSURETHRAL PROSTATECTOMY [None]
  - VENTRICULAR HYPERTROPHY [None]
  - WOUND DEHISCENCE [None]
  - WOUND INFECTION [None]
